FAERS Safety Report 15358072 (Version 1)
Quarter: 2018Q3

REPORT INFORMATION
  Report Type: Spontaneous
  Country: CA (occurrence: CA)
  Receive Date: 20180906
  Receipt Date: 20180906
  Transmission Date: 20181010
  Serious: Yes (Death)
  Sender: FDA-Public Use
  Company Number: PHHY2018CA091430

PATIENT

DRUGS (1)
  1. SODIUM CHLORIDE INJ USP [Suspect]
     Active Substance: SODIUM CHLORIDE
     Indication: END STAGE RENAL DISEASE
     Dosage: UNK
     Route: 042

REACTIONS (1)
  - Sepsis [Fatal]
